FAERS Safety Report 24292313 (Version 6)
Quarter: 2024Q4

REPORT INFORMATION
  Report Type: Report from Study
  Country: CA (occurrence: CA)
  Receive Date: 20240906
  Receipt Date: 20241104
  Transmission Date: 20250114
  Serious: Yes (Other)
  Sender: ROCHE
  Company Number: CA-ROCHE-10000070987

PATIENT
  Sex: Female

DRUGS (1)
  1. OCREVUS [Suspect]
     Active Substance: OCRELIZUMAB
     Indication: Relapsing-remitting multiple sclerosis
     Dosage: 300 MG AT DAY 0 AND 14, THEN 600 MG EVERY 6 MONTHS
     Route: 042
     Dates: start: 20241009

REACTIONS (12)
  - Hemiparesis [Not Recovered/Not Resolved]
  - Vision blurred [Not Recovered/Not Resolved]
  - Depression [Unknown]
  - Anxiety [Unknown]
  - Balance disorder [Unknown]
  - Dysuria [Unknown]
  - Fatigue [Not Recovered/Not Resolved]
  - Bladder pain [Unknown]
  - Sleep disorder [Unknown]
  - Pain [Unknown]
  - Headache [Not Recovered/Not Resolved]
  - Pain [Not Recovered/Not Resolved]
